FAERS Safety Report 7387262-6 (Version None)
Quarter: 2011Q1

REPORT INFORMATION
  Report Type: 
  Country: None (occurrence: None)
  Receive Date: 20110331
  Receipt Date: 20110324
  Transmission Date: 20110831
  Serious: Yes (Hospitalization, Other)
  Sender: FDA-Public Use
  Company Number: US-PFIZER INC-2011043140

PATIENT
  Sex: Male

DRUGS (1)
  1. SULFASALAZINE [Suspect]
     Dosage: 500 MG

REACTIONS (4)
  - RENAL IMPAIRMENT [None]
  - WEIGHT DECREASED [None]
  - ASTHENIA [None]
  - PNEUMONIA [None]
